FAERS Safety Report 5308410-5 (Version None)
Quarter: 2007Q2

REPORT INFORMATION
  Report Type: 
  Country: None (occurrence: None)
  Receive Date: 20070420
  Receipt Date: 20070420
  Transmission Date: 20071010
  Serious: Yes (Hospitalization)
  Sender: FDA-Public Use
  Company Number: None

PATIENT
  Age: 41 Year
  Sex: Male
  Weight: 74 kg

DRUGS (1)
  1. CIPROFLOXACIN [Suspect]
     Indication: EPIDIDYMITIS
     Dosage: 500 MG -10 DAYS, TWICE DAILY PO
     Route: 048
     Dates: start: 20060316, end: 20060325

REACTIONS (58)
  - ABDOMINAL PAIN UPPER [None]
  - ABNORMAL DREAMS [None]
  - ADVERSE DRUG REACTION [None]
  - AGITATION [None]
  - AMNESIA [None]
  - APHASIA [None]
  - ARTHRALGIA [None]
  - BALANCE DISORDER [None]
  - BURNING SENSATION [None]
  - COLITIS [None]
  - CONFUSIONAL STATE [None]
  - CONJUNCTIVITIS [None]
  - CONSTIPATION [None]
  - DEPRESSION [None]
  - DISTURBANCE IN ATTENTION [None]
  - DIZZINESS [None]
  - DRY EYE [None]
  - DRY MOUTH [None]
  - DYSURIA [None]
  - EYE IRRITATION [None]
  - FATIGUE [None]
  - FLATULENCE [None]
  - FOOD INTOLERANCE [None]
  - HEADACHE [None]
  - HYPOAESTHESIA [None]
  - IMPAIRED WORK ABILITY [None]
  - INSOMNIA [None]
  - IRRITABILITY [None]
  - LIBIDO DECREASED [None]
  - LOSS OF CONSCIOUSNESS [None]
  - MICTURITION DISORDER [None]
  - MUSCLE TWITCHING [None]
  - MUSCULOSKELETAL STIFFNESS [None]
  - MYALGIA [None]
  - NECK PAIN [None]
  - NEPHROLITHIASIS [None]
  - NERVOUSNESS [None]
  - NIGHT SWEATS [None]
  - NIGHTMARE [None]
  - PAIN [None]
  - PANIC ATTACK [None]
  - PARAESTHESIA [None]
  - PERINEAL PAIN [None]
  - PERIPHERAL COLDNESS [None]
  - PHOTOPHOBIA [None]
  - POLLAKIURIA [None]
  - POOR QUALITY SLEEP [None]
  - PROCTALGIA [None]
  - SCHIRMER'S TEST ABNORMAL [None]
  - SEMEN ABNORMAL [None]
  - TENDON PAIN [None]
  - TESTICULAR PAIN [None]
  - TINNITUS [None]
  - URETHRAL PAIN [None]
  - URINARY HESITATION [None]
  - URINE ABNORMALITY [None]
  - URINE FLOW DECREASED [None]
  - VISION BLURRED [None]
